FAERS Safety Report 17411785 (Version 1)
Quarter: 2020Q1

REPORT INFORMATION
  Report Type: Spontaneous
  Country: IN (occurrence: IN)
  Receive Date: 20200213
  Receipt Date: 20200213
  Transmission Date: 20200409
  Serious: Yes (Other)
  Sender: FDA-Public Use
  Company Number: IN-MACLEODS PHARMACEUTICALS US LTD-MAC2020025064

PATIENT

DRUGS (1)
  1. TRIAMCINOLONE [Suspect]
     Active Substance: TRIAMCINOLONE
     Indication: JUVENILE IDIOPATHIC ARTHRITIS
     Dosage: 4 MILLIGRAM
     Route: 048

REACTIONS (4)
  - Hyperadrenocorticism [Unknown]
  - Cushing^s syndrome [Unknown]
  - Uveitis [Unknown]
  - Adrenal mass [Unknown]
